FAERS Safety Report 17238059 (Version 1)
Quarter: 2020Q1

REPORT INFORMATION
  Report Type: Spontaneous
  Country: US (occurrence: US)
  Receive Date: 20200106
  Receipt Date: 20200106
  Transmission Date: 20200409
  Serious: No
  Sender: FDA-Public Use
  Company Number: US-PACIRA-201900176

PATIENT

DRUGS (2)
  1. ROPIVACAIN [Suspect]
     Active Substance: ROPIVACAINE
     Indication: POSTOPERATIVE ANALGESIA
     Dosage: CONTINUOUS LOCAL INFUSION AT A RATE OF 4-12 CC/HR
     Route: 052
  2. EXPAREL [Suspect]
     Active Substance: BUPIVACAINE
     Indication: POSTOPERATIVE ANALGESIA
     Dosage: 20 CC OF 1.3% LIPOSOMAL BUPIVACAINE DILUTED WITH STERILE NORMAL SALINE
     Route: 052

REACTIONS (1)
  - Pain [Unknown]
